FAERS Safety Report 18953649 (Version 1)
Quarter: 2021Q1

REPORT INFORMATION
  Report Type: Spontaneous
  Country: US (occurrence: US)
  Receive Date: 20210301
  Receipt Date: 20210301
  Transmission Date: 20210420
  Serious: Yes (Other)
  Sender: FDA-Public Use
  Company Number: US-GLAXOSMITHKLINE-US2021GSK041892

PATIENT
  Sex: Male

DRUGS (12)
  1. RANITIDINE. [Suspect]
     Active Substance: RANITIDINE
     Indication: INTESTINAL ULCER
     Dosage: 300 MG, OCCASIONAL
     Route: 065
     Dates: start: 199201, end: 201411
  2. ZANTAC [Suspect]
     Active Substance: RANITIDINE HYDROCHLORIDE
     Indication: INTESTINAL ULCER
     Dosage: 300 MG, OCCASIONAL
     Route: 065
     Dates: start: 199201, end: 201411
  3. RANITIDINE. [Suspect]
     Active Substance: RANITIDINE
     Indication: INTESTINAL ULCER
     Dosage: 300 MG, OCCASIONAL
     Route: 065
     Dates: start: 199201, end: 201411
  4. ZANTAC [Suspect]
     Active Substance: RANITIDINE HYDROCHLORIDE
     Indication: GASTRIC ULCER
     Dosage: 150 MG, OCCASIONAL
     Route: 065
     Dates: start: 199201, end: 201411
  5. RANITIDINE. [Suspect]
     Active Substance: RANITIDINE
     Indication: GASTRIC ULCER
     Dosage: 150 MG, OCCASIONAL
     Route: 065
     Dates: start: 199201, end: 201411
  6. RANITIDINE CAPSULE [Suspect]
     Active Substance: RANITIDINE
     Indication: INTESTINAL ULCER
     Dosage: 300 MG, OCCASIONAL
     Route: 065
     Dates: start: 199201, end: 201411
  7. RANITIDINE. [Suspect]
     Active Substance: RANITIDINE
     Indication: GASTRIC ULCER
     Dosage: 150 MG, OCCASIONAL
     Route: 065
     Dates: start: 199201, end: 201411
  8. RANITIDINE CAPSULE [Suspect]
     Active Substance: RANITIDINE
     Indication: GASTRIC ULCER
     Dosage: 150 MG, OCCASIONAL
     Route: 065
     Dates: start: 199201, end: 201411
  9. ZANTAC [Suspect]
     Active Substance: RANITIDINE HYDROCHLORIDE
     Indication: GASTRIC ULCER
     Dosage: 150 MG, OCCASIONAL
     Route: 065
     Dates: start: 199201, end: 201411
  10. ZANTAC [Suspect]
     Active Substance: RANITIDINE HYDROCHLORIDE
     Indication: INTESTINAL ULCER
     Dosage: 300 MG, OCCASIONAL
     Route: 065
     Dates: start: 199201, end: 201411
  11. RANITIDINE. [Suspect]
     Active Substance: RANITIDINE
     Indication: GASTRIC ULCER
     Dosage: 150 MG, OCCASIONAL
     Route: 065
     Dates: start: 199201, end: 201411
  12. RANITIDINE. [Suspect]
     Active Substance: RANITIDINE
     Indication: INTESTINAL ULCER
     Dosage: 300 MG, OCCASIONAL
     Route: 065
     Dates: start: 199201, end: 201411

REACTIONS (1)
  - Renal cancer [Unknown]
